FAERS Safety Report 5936773-6 (Version None)
Quarter: 2008Q4

REPORT INFORMATION
  Report Type: 
  Country: None (occurrence: None)
  Receive Date: 20081029
  Receipt Date: 20081014
  Transmission Date: 20090506
  Serious: Yes (Hospitalization, Other)
  Sender: FDA-Public Use
  Company Number: 2008US002787

PATIENT
  Age: 56 Year
  Sex: Male
  Weight: 117.9 kg

DRUGS (1)
  1. AMEVIVE [Suspect]
     Indication: PSORIASIS
     Dosage: 15 MG, WEEKLY, INTRAMUSCULAR
     Route: 030
     Dates: start: 20050103

REACTIONS (2)
  - LYMPHOMA [None]
  - MYOCARDIAL INFARCTION [None]
